FAERS Safety Report 6802137-6 (Version None)
Quarter: 2010Q2

REPORT INFORMATION
  Report Type: 
  Country: None (occurrence: None)
  Receive Date: 20100629
  Receipt Date: 20080131
  Transmission Date: 20101027
  Serious: Yes (Other)
  Sender: FDA-Public Use
  Company Number: US-PFIZER INC-2006066766

PATIENT
  Sex: Female
  Weight: 106.6 kg

DRUGS (5)
  1. BEXTRA [Suspect]
     Indication: NERVE INJURY
  2. CELEBREX [Suspect]
     Indication: NERVE INJURY
  3. DARVOCET [Suspect]
     Indication: PAIN
  4. HYGROTON [Concomitant]
  5. PAXIL [Concomitant]

REACTIONS (10)
  - DECREASED ACTIVITY [None]
  - DEPRESSION [None]
  - DIABETES MELLITUS [None]
  - DRUG INEFFECTIVE [None]
  - DRUG INTOLERANCE [None]
  - GASTROINTESTINAL DISORDER [None]
  - JOINT RANGE OF MOTION DECREASED [None]
  - NAUSEA [None]
  - OBESITY [None]
  - VOMITING [None]
